FAERS Safety Report 16879469 (Version 1)
Quarter: 2019Q4

REPORT INFORMATION
  Report Type: Spontaneous
  Country: LB (occurrence: LB)
  Receive Date: 20191003
  Receipt Date: 20191003
  Transmission Date: 20200122
  Serious: Yes (Other)
  Sender: FDA-Public Use
  Company Number: LB-LUPIN PHARMACEUTICALS INC.-2019-06189

PATIENT
  Age: 52 Year
  Sex: Female

DRUGS (1)
  1. POTASSIUM CHLORIDE. [Suspect]
     Active Substance: POTASSIUM CHLORIDE
     Indication: HYPOKALAEMIA
     Dosage: 10 MILLIEQUIVALENT PER LITRE (10% 10 MEQ/L USING AN INFUSION PUMP)
     Route: 042

REACTIONS (2)
  - Skin injury [Recovered/Resolved]
  - Infusion site extravasation [Recovered/Resolved]
